FAERS Safety Report 11793136 (Version 1)
Quarter: 2015Q4

REPORT INFORMATION
  Report Type: Spontaneous
  Country: US (occurrence: US)
  Receive Date: 20151202
  Receipt Date: 20151202
  Transmission Date: 20160305
  Serious: Yes (Other)
  Sender: FDA-Public Use
  Company Number: US-PERRIGO-15US012377

PATIENT
  Age: 64 Year
  Sex: Female
  Weight: 54.42 kg

DRUGS (1)
  1. CLOTRIMAZOLE RX 10 MG 8N9 [Suspect]
     Active Substance: CLOTRIMAZOLE
     Indication: ORAL CANDIDIASIS
     Dosage: ONE LOZENGE, 1 TO 5 TIMES DAILY
     Route: 002
     Dates: start: 20151116, end: 20151122

REACTIONS (7)
  - Frequent bowel movements [Recovering/Resolving]
  - Hyperhidrosis [Recovered/Resolved]
  - Flatulence [Recovering/Resolving]
  - Nausea [Recovering/Resolving]
  - Abdominal pain [Recovering/Resolving]
  - Chills [Recovered/Resolved]
  - Loss of consciousness [Recovered/Resolved]

NARRATIVE: CASE EVENT DATE: 20151117
